FAERS Safety Report 7802549-8 (Version None)
Quarter: 2011Q4

REPORT INFORMATION
  Report Type: 
  Country: None (occurrence: None)
  Receive Date: 20111007
  Receipt Date: 20110928
  Transmission Date: 20120403
  Serious: Yes (Hospitalization)
  Sender: FDA-Public Use
  Company Number: JP-EISAI INC-E7389-01623-CLI-JP

PATIENT
  Sex: Female
  Weight: 40 kg

DRUGS (21)
  1. CELESTAMINE TAB [Concomitant]
     Indication: PROPHYLAXIS
     Route: 048
  2. ZOMETA [Concomitant]
     Indication: METASTASES TO BONE
  3. LANSOPRAZOLE [Concomitant]
     Indication: PROPHYLAXIS
     Route: 048
  4. GRANISETRON [Concomitant]
     Indication: PROPHYLAXIS
  5. MEDROXYPROGESTERONE ACETATE [Concomitant]
     Indication: BREAST CANCER RECURRENT
     Dates: start: 20100603
  6. FUROSEMIDE [Concomitant]
  7. GLYCEOL [Concomitant]
  8. HALAVEN [Suspect]
     Indication: METASTASES TO LIVER
  9. PACIF [Concomitant]
     Route: 048
  10. HALAVEN [Suspect]
  11. AZUNOL [Concomitant]
     Indication: PROPHYLAXIS
  12. HALAVEN [Suspect]
     Indication: METASTASES TO BONE
  13. PHENYTOIN SODIUM CAP [Concomitant]
     Indication: PROPHYLAXIS
     Route: 048
  14. HALAVEN [Suspect]
     Indication: BREAST CANCER RECURRENT
     Dates: start: 20110804
  15. HALAVEN [Suspect]
     Indication: METASTASES TO LUNG
  16. MEDROXYPROGESTERONE ACETATE [Concomitant]
  17. DECADRON [Concomitant]
     Indication: PROPHYLAXIS
  18. FAMOTIDINE [Concomitant]
     Indication: PROPHYLAXIS
  19. NEOPHAGEN [Concomitant]
     Indication: PROPHYLAXIS
  20. PRECOAT [Concomitant]
     Route: 048
  21. ELIETEN [Concomitant]
     Indication: PROPHYLAXIS
     Route: 048

REACTIONS (3)
  - LEUKOPENIA [None]
  - NEUTROPENIA [None]
  - PNEUMONIA [None]
